FAERS Safety Report 10710489 (Version 4)
Quarter: 2015Q3

REPORT INFORMATION
  Report Type: Spontaneous
  Country: US (occurrence: US)
  Receive Date: 20150114
  Receipt Date: 20150811
  Transmission Date: 20151125
  Serious: Yes (Life-Threatening, Hospitalization)
  Sender: FDA-Public Use
  Company Number: US-JNJFOC-20150106793

PATIENT
  Age: 82 Year
  Sex: Female

DRUGS (4)
  1. HUMULIN INSULIN [Concomitant]
     Active Substance: INSULIN HUMAN
     Route: 065
  2. XARELTO [Suspect]
     Active Substance: RIVAROXABAN
     Indication: DEEP VEIN THROMBOSIS
     Route: 048
     Dates: start: 20131227, end: 201403
  3. MONTELUKAST [Concomitant]
     Active Substance: MONTELUKAST SODIUM
     Route: 048
  4. XARELTO [Suspect]
     Active Substance: RIVAROXABAN
     Indication: DEEP VEIN THROMBOSIS
     Route: 048
     Dates: start: 20140724, end: 20140810

REACTIONS (4)
  - Gastrointestinal haemorrhage [Recovering/Resolving]
  - Haemorrhagic anaemia [Recovered/Resolved]
  - Rectal haemorrhage [Recovering/Resolving]
  - Atrial fibrillation [Recovered/Resolved]

NARRATIVE: CASE EVENT DATE: 201408
